FAERS Safety Report 12272347 (Version 1)
Quarter: 2016Q2

REPORT INFORMATION
  Report Type: Spontaneous
  Country: US (occurrence: US)
  Receive Date: 20160415
  Receipt Date: 20160415
  Transmission Date: 20160815
  Serious: Yes (Hospitalization, Other)
  Sender: FDA-Public Use
  Company Number: US-JNJFOC-20160210596

PATIENT
  Age: 49 Year
  Sex: Female
  Weight: 91.17 kg

DRUGS (9)
  1. VICTOZA [Concomitant]
     Active Substance: LIRAGLUTIDE
     Dosage: DOSE: 1.8 (UNITS UNSPECIFIED)
     Route: 065
  2. ATORVASTATIN [Concomitant]
     Active Substance: ATORVASTATIN
     Route: 065
  3. GLIPIZIDE. [Concomitant]
     Active Substance: GLIPIZIDE
     Route: 065
  4. ASA [Concomitant]
     Active Substance: ASPIRIN
     Route: 065
  5. INVOKANA [Suspect]
     Active Substance: CANAGLIFLOZIN
     Indication: TYPE 2 DIABETES MELLITUS
     Route: 048
     Dates: start: 20140403
  6. METFORMIN [Concomitant]
     Active Substance: METFORMIN HYDROCHLORIDE
     Route: 065
  7. DIOVAN [Concomitant]
     Active Substance: VALSARTAN
     Route: 065
  8. INVOKANA [Suspect]
     Active Substance: CANAGLIFLOZIN
     Indication: TYPE 2 DIABETES MELLITUS
     Route: 048
     Dates: start: 201506, end: 201510
  9. HCTZ [Concomitant]
     Active Substance: HYDROCHLOROTHIAZIDE
     Route: 065

REACTIONS (2)
  - Hepatic enzyme increased [Unknown]
  - Renal cancer [Recovered/Resolved]

NARRATIVE: CASE EVENT DATE: 20150917
